FAERS Safety Report 7774533-4 (Version None)
Quarter: 2011Q3

REPORT INFORMATION
  Report Type: 
  Country: None (occurrence: None)
  Receive Date: 20110923
  Receipt Date: 20110923
  Transmission Date: 20111222
  Serious: Yes (Other)
  Sender: FDA-Public Use
  Company Number: None

PATIENT
  Age: 84 Year
  Sex: Female
  Weight: 76.657 kg

DRUGS (1)
  1. ACTOS [Suspect]
     Indication: DIABETES MELLITUS

REACTIONS (1)
  - BLADDER ADENOCARCINOMA STAGE UNSPECIFIED [None]
